FAERS Safety Report 19433430 (Version 3)
Quarter: 2021Q2

REPORT INFORMATION
  Report Type: Spontaneous
  Country: US (occurrence: US)
  Receive Date: 20210618
  Receipt Date: 20210629
  Transmission Date: 20210717
  Serious: Yes (Hospitalization, Other)
  Sender: FDA-Public Use
  Company Number: US-UNITED THERAPEUTICS-UNT-2021-009487

PATIENT
  Age: 52 Year
  Sex: Male
  Weight: 87.08 kg

DRUGS (7)
  1. ADEMPAS [Suspect]
     Active Substance: RIOCIGUAT
     Indication: PRODUCT USED FOR UNKNOWN INDICATION
     Dosage: UNK
     Route: 065
     Dates: end: 202106
  2. TRAMADOL. [Suspect]
     Active Substance: TRAMADOL
     Indication: PRODUCT USED FOR UNKNOWN INDICATION
     Dosage: UNK, (TOOK 2 DOSES)
     Route: 065
     Dates: start: 20210610
  3. GABAPENTIN. [Concomitant]
     Active Substance: GABAPENTIN
     Indication: PRODUCT USED FOR UNKNOWN INDICATION
     Dosage: UNK
     Route: 065
  4. REMODULIN [Suspect]
     Active Substance: TREPROSTINIL
     Dosage: 0.026 ?G/KG, CONTINUING
     Route: 058
     Dates: start: 202105
  5. OPSUMIT [Concomitant]
     Active Substance: MACITENTAN
     Indication: PRODUCT USED FOR UNKNOWN INDICATION
     Dosage: UNK
     Route: 065
  6. REMODULIN [Suspect]
     Active Substance: TREPROSTINIL
     Indication: PULMONARY ARTERIAL HYPERTENSION
     Dosage: UNK, CONTINUING
     Route: 058
     Dates: start: 20210506, end: 202105
  7. REMODULIN [Suspect]
     Active Substance: TREPROSTINIL
     Dosage: 0.022 ?G/KG, CONTINUING
     Route: 058
     Dates: start: 202105, end: 202105

REACTIONS (16)
  - Testicular cyst [Unknown]
  - Loss of consciousness [Unknown]
  - Pneumonia [Unknown]
  - Headache [Unknown]
  - Oxygen saturation decreased [Recovering/Resolving]
  - Myalgia [Unknown]
  - Pain in extremity [Not Recovered/Not Resolved]
  - Hypotension [Recovering/Resolving]
  - Tremor [Unknown]
  - Scrotal pain [Unknown]
  - Decreased appetite [Unknown]
  - Muscle spasms [Unknown]
  - Dizziness [Unknown]
  - Syncope [Recovered/Resolved]
  - Dehydration [Unknown]
  - Nausea [Unknown]

NARRATIVE: CASE EVENT DATE: 202105
